FAERS Safety Report 12364246 (Version 1)
Quarter: 2016Q2

REPORT INFORMATION
  Report Type: Spontaneous
  Country: FR (occurrence: FR)
  Receive Date: 20160512
  Receipt Date: 20160512
  Transmission Date: 20160815
  Serious: Yes (Other)
  Sender: FDA-Public Use
  Company Number: FR-TEVA-657050ISR

PATIENT
  Age: 59 Year
  Sex: Male

DRUGS (1)
  1. TAMOXIFENE [Suspect]
     Active Substance: TAMOXIFEN
     Indication: HEPATIC CANCER

REACTIONS (1)
  - Optic neuritis [Unknown]
